FAERS Safety Report 10170978 (Version 1)
Quarter: 2014Q2

REPORT INFORMATION
  Report Type: Not Available
  Country: US (occurrence: US)
  Receive Date: 20140514
  Receipt Date: 20140514
  Transmission Date: 20141212
  Serious: Yes (Other)
  Sender: FDA-Public Use
  Company Number: US-LUPIN PHARMACEUTICALS INC.-E2B_00001998

PATIENT
  Age: 73 Year
  Sex: Female

DRUGS (7)
  1. LISINOPRIL TABLETS USP 40MG [Suspect]
     Indication: HYPERTENSION
     Dates: start: 201401, end: 20140328
  2. AMLODIPINE BESYLATE TABLETS 5 MG (AMLODIPINE BESILATE) ( 5 MILLIGRAM, TABLETS) [Suspect]
     Indication: HYPERTENSION
     Dates: start: 20140329
  3. AMLODIPINE BESYLATE TABLETS 5 MG (AMLODIPINE BESILATE) ( 5 MILLIGRAM, TABLETS) [Suspect]
     Dates: start: 20140501
  4. HYDROCODONE + ACETAMINOPHEN [Concomitant]
     Indication: PAIN
     Dosage: UNIT DOSE: 10MG + 325MG
     Dates: start: 201403
  5. METOPROLOL [Concomitant]
     Indication: PRODUCT USED FOR UNKNOWN INDICATION
     Dates: start: 201104
  6. COLACE [Concomitant]
     Indication: FAECES HARD
     Dates: start: 201403
  7. SENNA + DOCUSATE [Concomitant]
     Indication: CONSTIPATION
     Dosage: UNIT DOSE: 8.6MG + 50MG
     Dates: start: 201403

REACTIONS (4)
  - Speech disorder [Recovered/Resolved]
  - Blood pressure systolic increased [Recovered/Resolved]
  - Lip swelling [Recovered/Resolved]
  - Dysphagia [Recovered/Resolved]
